FAERS Safety Report 7135078-8 (Version None)
Quarter: 2010Q4

REPORT INFORMATION
  Report Type: 
  Country: None (occurrence: None)
  Receive Date: 20101203
  Receipt Date: 20101124
  Transmission Date: 20110411
  Serious: Yes (Hospitalization, Other)
  Sender: FDA-Public Use
  Company Number: US-TEVA-257876USA

PATIENT
  Sex: Male

DRUGS (1)
  1. QUININE SULFATE [Suspect]
     Indication: MUSCLE SPASMS

REACTIONS (7)
  - ANXIETY [None]
  - BLOOD DISORDER [None]
  - ECONOMIC PROBLEM [None]
  - IMPAIRED WORK ABILITY [None]
  - MULTIPLE INJURIES [None]
  - PAIN [None]
  - THROMBOCYTOPENIA [None]
